FAERS Safety Report 8960590 (Version 1)
Quarter: 2012Q4

REPORT INFORMATION
  Report Type: Spontaneous
  Country: US (occurrence: None)
  Receive Date: 20121130
  Receipt Date: 20121130
  Transmission Date: 20130627
  Serious: Yes (Other)
  Sender: FDA-Public Use
  Company Number: E2B_00000319

PATIENT
  Age: 56 Year
  Sex: Female
  Weight: 68.04 kg

DRUGS (6)
  1. LEVETIRACETAM [Suspect]
     Indication: GRAND MAL SEIZURE
     Dosage: half tablets (250 mg, daily) per oral
     Route: 048
  2. LEVETIRACETAM [Suspect]
     Indication: GRAND MAL SEIZURE
     Dosage: 2000 mg (1000 mg, unk), per oral
     Route: 048
     Dates: start: 201208, end: 201211
  3. LEVETIRACETAM [Suspect]
     Indication: GRAND MAL SEIZURE
     Route: 048
     Dates: start: 201211, end: 20121115
  4. PHENYTOIN [Suspect]
     Indication: GRAND MAL SEIZURE
     Route: 048
  5. LORAZEPAM [Concomitant]
  6. HYDROCODONE/ACETAMINOPHREN [Concomitant]

REACTIONS (9)
  - Diarrhoea [None]
  - Nausea [None]
  - Malaise [None]
  - Cystitis interstitial [None]
  - Cystitis [None]
  - Abdominal pain [None]
  - Mood altered [None]
  - Insomnia [None]
  - Withdrawal syndrome [None]
